FAERS Safety Report 8864308 (Version 1)
Quarter: 2012Q4

REPORT INFORMATION
  Report Type: 
  Country: US (occurrence: US)
  Receive Date: 20121024
  Receipt Date: 20121024
  Transmission Date: 20130627
  Serious: No
  Sender: FDA-Public Use
  Company Number: US-AMGEN-USASP2011066984

PATIENT
  Age: 60 Year
  Sex: Female

DRUGS (1)
  1. ENBREL [Suspect]
     Indication: RHEUMATOID ARTHRITIS
     Dosage: 50 mg, qwk
     Dates: start: 20110921, end: 201110

REACTIONS (7)
  - Erythema [Recovered/Resolved]
  - Swelling [Recovered/Resolved]
  - Weight increased [Recovered/Resolved]
  - Contusion [Recovered/Resolved]
  - Onychalgia [Not Recovered/Not Resolved]
  - Pruritus [Recovered/Resolved]
  - Onychomycosis [Not Recovered/Not Resolved]
